FAERS Safety Report 15534626 (Version 1)
Quarter: 2018Q4

REPORT INFORMATION
  Report Type: Report from Study
  Country: FR (occurrence: FR)
  Receive Date: 20181022
  Receipt Date: 20181022
  Transmission Date: 20190205
  Serious: Yes (Death, Hospitalization, Other)
  Sender: FDA-Public Use
  Company Number: FR-IPSEN BIOPHARMACEUTICALS, INC.-2018-15937

PATIENT
  Age: 41 Year
  Sex: Male
  Weight: 55 kg

DRUGS (25)
  1. SUTENT [Suspect]
     Active Substance: SUNITINIB MALATE
     Dosage: 25 MG, ONCE DAILY CONTINUOUS
     Dates: start: 20150919, end: 20151023
  2. GEMCITABINE HYDROCHLORIDE. [Suspect]
     Active Substance: GEMCITABINE HYDROCHLORIDE
     Dosage: 500 MG/M2 EVERY 14 DAYS; CYCLICAL
     Dates: start: 20151105, end: 20160218
  3. FLUOROURACIL. [Suspect]
     Active Substance: FLUOROURACIL
     Indication: PANCREATIC NEUROENDOCRINE TUMOUR
     Dosage: 2400 MG/M2, SINGLE; IN TOTAL
     Dates: start: 20160914, end: 20160914
  4. SOLU-MEDROL [Concomitant]
     Active Substance: METHYLPREDNISOLONE SODIUM SUCCINATE
     Indication: ABDOMINAL PAIN
     Dosage: UNKNOWN
     Route: 048
     Dates: start: 20161004, end: 20161005
  5. SOLU-MEDROL [Concomitant]
     Active Substance: METHYLPREDNISOLONE SODIUM SUCCINATE
     Dosage: UNK
     Route: 048
     Dates: start: 20160920, end: 20160920
  6. MORPHIN [Concomitant]
     Active Substance: MORPHINE
     Indication: ABDOMINAL PAIN
     Dosage: UNKNOWN
     Route: 042
     Dates: start: 20161004, end: 20161007
  7. SUTENT [Suspect]
     Active Substance: SUNITINIB MALATE
     Indication: PANCREATIC NEUROENDOCRINE TUMOUR
     Dosage: 37.5 MG, DAILY
     Dates: start: 20150827, end: 20150831
  8. OXALIPLATIN. [Suspect]
     Active Substance: OXALIPLATIN
     Dosage: 75 MG/M2, CYCLIC, EVERY 14 DAYS; CYCLICAL
     Dates: start: 20160616
  9. IRINOTECAN HYDROCHLORIDE. [Suspect]
     Active Substance: IRINOTECAN HYDROCHLORIDE
     Indication: PANCREATIC NEUROENDOCRINE TUMOUR
     Dosage: 180 MG/M2, SINGLE; IN TOTAL
     Dates: start: 20160914
  10. SOLUPRED [PREDNISOLONE METASULFOBENZOATE SODIUM] [Concomitant]
     Active Substance: PREDNISOLONE SODIUM METAZOATE
     Indication: ABDOMINAL PAIN
     Dosage: UNKNOWN
     Route: 048
     Dates: start: 20160920, end: 20160923
  11. METEOXANE [Concomitant]
     Active Substance: AMOBARBITAL\BELLADONNA LEAF\DIMETHICONE\ERGOTAMINE TARTRATE
     Indication: ABDOMINAL DISTENSION
     Dosage: UNKNOWN
     Route: 048
     Dates: start: 20160729, end: 2016
  12. SUTENT [Suspect]
     Active Substance: SUNITINIB MALATE
     Dosage: 12.5 MG, DAILY
     Dates: start: 2015, end: 2015
  13. TARDYFERON [Concomitant]
     Active Substance: FERROUS SULFATE
     Indication: IRON DEFICIENCY
     Dosage: UNK
     Route: 048
     Dates: start: 20160630, end: 20160729
  14. INNOHEP [Concomitant]
     Active Substance: TINZAPARIN SODIUM
     Indication: PROPHYLAXIS
     Dosage: UNK
     Route: 058
     Dates: start: 20160915
  15. LANREOTIDE AUTOGEL [Suspect]
     Active Substance: LANREOTIDE
     Indication: PANCREATIC NEUROENDOCRINE TUMOUR
     Dosage: 120 MG, CYCLIC, EVERY 28 DAYS; CYCLICAL
     Route: 050
     Dates: start: 20160810, end: 20160907
  16. OXYNORM [Concomitant]
     Active Substance: OXYCODONE HYDROCHLORIDE
     Indication: ABDOMINAL PAIN
     Dosage: UNKNOWN
     Route: 048
     Dates: start: 201510
  17. DUROGESIC [Concomitant]
     Active Substance: FENTANYL
     Indication: ABDOMINAL PAIN
     Dosage: UNKNOWN
     Route: 003
     Dates: start: 201510
  18. OXALIPLATIN. [Suspect]
     Active Substance: OXALIPLATIN
     Indication: PANCREATIC NEUROENDOCRINE TUMOUR
     Dosage: 75 MG/M2 EVERY14 DAYS; CYCLICAL
     Dates: start: 20151105, end: 20160218
  19. OXYNORM [Concomitant]
     Active Substance: OXYCODONE HYDROCHLORIDE
     Dosage: UNK
     Route: 048
     Dates: start: 20160916, end: 20161004
  20. DEBRIDAT [Concomitant]
     Active Substance: TRIMEBUTINE MALEATE
     Indication: ABDOMINAL DISTENSION
     Dosage: UNKNOWN
     Route: 048
     Dates: start: 20160902, end: 2016
  21. DUROGESIC [Concomitant]
     Active Substance: FENTANYL
     Dosage: UNK
     Route: 003
     Dates: start: 20160922, end: 20161004
  22. INIPOMP [Concomitant]
     Active Substance: PANTOPRAZOLE SODIUM
     Indication: REFLUX GASTRITIS
     Dosage: UNKNOWN
     Route: 048
     Dates: start: 20160616
  23. GEMCITABINE HYDROCHLORIDE. [Suspect]
     Active Substance: GEMCITABINE HYDROCHLORIDE
     Indication: PANCREATIC NEUROENDOCRINE TUMOUR
     Dosage: 500 MG/M2, CYCLIC, EVERY 14 DAYS; CYCLICAL
     Dates: start: 20160616
  24. FLUOROURACIL. [Suspect]
     Active Substance: FLUOROURACIL
     Dosage: 400 MG/M2, SINGLE; IN TOTAL
     Dates: start: 20160914
  25. ELVORINE [Suspect]
     Active Substance: LEUCOVORIN CALCIUM
     Indication: PANCREATIC NEUROENDOCRINE TUMOUR
     Dosage: 200 MG/M2, UNK
     Dates: start: 20160914

REACTIONS (15)
  - General physical health deterioration [Fatal]
  - Pain [Fatal]
  - Asthenia [Fatal]
  - Decreased appetite [Fatal]
  - Psychomotor retardation [Fatal]
  - Tumour necrosis [Fatal]
  - Hypoaesthesia [Fatal]
  - Neutropenia [Fatal]
  - Asthenia [Fatal]
  - Hepatic pain [Fatal]
  - Decreased appetite [Fatal]
  - Dysaesthesia [Fatal]
  - Abdominal pain [Fatal]
  - Dyspnoea [Fatal]
  - Neoplasm progression [Fatal]

NARRATIVE: CASE EVENT DATE: 20150829
